FAERS Safety Report 9525312 (Version 1)
Quarter: 2013Q1

REPORT INFORMATION
  Report Type: Spontaneous
  Country: US (occurrence: None)
  Receive Date: 20130314
  Receipt Date: 20130314
  Transmission Date: 20140127
  Serious: No
  Sender: FDA-Public Use
  Company Number: 1212USA001773

PATIENT
  Age: 58 Year
  Sex: Male

DRUGS (7)
  1. VICTRELIS (BOCEPREVIR) CAPSULE, 200MG [Suspect]
     Indication: HEPATITIS C
     Route: 048
     Dates: start: 20121011
  2. PEGASYS (PEGINTERFERON ALFA-2A) [Concomitant]
  3. RIBASPHERE (RIBAVIRIN) [Concomitant]
  4. PRILOSEC [Concomitant]
  5. ZYRTEC (CETIRIZINE HYDROCHLORIDE) [Concomitant]
  6. VITAMINS [Concomitant]
  7. MAGNEBIND (CALCIUM CARBONATE, MAGNESIUM CARBONATE) [Concomitant]

REACTIONS (1)
  - Fatigue [None]
